FAERS Safety Report 20780388 (Version 2)
Quarter: 2022Q2

REPORT INFORMATION
  Report Type: Report from Study
  Country: US (occurrence: US)
  Receive Date: 20220504
  Receipt Date: 20220524
  Transmission Date: 20220720
  Serious: Yes (Hospitalization)
  Sender: FDA-Public Use
  Company Number: US-BoehringerIngelheim-2020-BI-050511

PATIENT
  Age: 75 Year
  Sex: Male

DRUGS (3)
  1. OFEV [Suspect]
     Active Substance: NINTEDANIB
     Indication: Pulmonary fibrosis
     Route: 048
     Dates: start: 20200805
  2. OFEV [Suspect]
     Active Substance: NINTEDANIB
  3. OFEV [Suspect]
     Active Substance: NINTEDANIB
     Route: 048

REACTIONS (13)
  - Pleural effusion [Unknown]
  - Dehydration [Unknown]
  - Pericardial effusion [Unknown]
  - Drug interaction [Not Recovered/Not Resolved]
  - Diarrhoea [Recovered/Resolved]
  - Tremor [Unknown]
  - Nausea [Unknown]
  - Dizziness [Unknown]
  - Dyspnoea [Unknown]
  - Productive cough [Not Recovered/Not Resolved]
  - Vertigo [Not Recovered/Not Resolved]
  - Constipation [Unknown]
  - Tremor [Unknown]

NARRATIVE: CASE EVENT DATE: 20200901
